FAERS Safety Report 9165458 (Version 1)
Quarter: 2013Q1

REPORT INFORMATION
  Report Type: Spontaneous
  Country: US (occurrence: US)
  Receive Date: 20130315
  Receipt Date: 20130315
  Transmission Date: 20140127
  Serious: No
  Sender: FDA-Public Use
  Company Number: US-009507513-1303USA006773

PATIENT
  Age: 15 Year
  Sex: Male

DRUGS (1)
  1. PROPECIA [Suspect]
     Dosage: UNK
     Dates: start: 200606

REACTIONS (4)
  - Erectile dysfunction [Not Recovered/Not Resolved]
  - Sexual dysfunction [Not Recovered/Not Resolved]
  - Off label use [Unknown]
  - Drug administration error [Unknown]
